FAERS Safety Report 9655293 (Version 2)
Quarter: 2013Q4

REPORT INFORMATION
  Report Type: Spontaneous
  Country: US (occurrence: US)
  Receive Date: 20131029
  Receipt Date: 20131029
  Transmission Date: 20140711
  Serious: Yes (Hospitalization)
  Sender: FDA-Public Use
  Company Number: US-NAPPMUNDI-USA-2012-0086670

PATIENT
  Age: 58 Year
  Sex: Female
  Weight: 68.03 kg

DRUGS (1)
  1. OXYCONTIN (NDA 22-272) [Suspect]
     Indication: SPINAL COLUMN STENOSIS
     Dosage: 60 MG, UNK
     Route: 048
     Dates: start: 20100217, end: 20120430

REACTIONS (2)
  - Drug withdrawal syndrome [Recovered/Resolved]
  - Intentional drug misuse [Unknown]
